FAERS Safety Report 23718547 (Version 12)
Quarter: 2025Q1

REPORT INFORMATION
  Report Type: Report from Study
  Country: CA (occurrence: CA)
  Receive Date: 20240408
  Receipt Date: 20250303
  Transmission Date: 20250409
  Serious: Yes (Hospitalization, Other)
  Sender: TAKEDA
  Company Number: CA-TAKEDA-2024TUS032547

PATIENT
  Age: 67 Year
  Sex: Male

DRUGS (12)
  1. VEDOLIZUMAB [Suspect]
     Active Substance: VEDOLIZUMAB
     Indication: Colitis ulcerative
  2. VEDOLIZUMAB [Suspect]
     Active Substance: VEDOLIZUMAB
     Dosage: 300 MILLIGRAM, Q6WEEKS
     Dates: start: 20210706
  3. VEDOLIZUMAB [Suspect]
     Active Substance: VEDOLIZUMAB
     Dosage: 300 MILLIGRAM, Q6WEEKS
  4. VEDOLIZUMAB [Suspect]
     Active Substance: VEDOLIZUMAB
     Dosage: 300 MILLIGRAM, Q4WEEKS
     Dates: start: 20240807
  5. VEDOLIZUMAB [Suspect]
     Active Substance: VEDOLIZUMAB
     Dosage: 300 MILLIGRAM, Q4WEEKS
  6. ASACOL [Concomitant]
     Active Substance: MESALAMINE
  7. METHOTREXATE [Concomitant]
     Active Substance: METHOTREXATE
  8. RABEPRAZOLE [Concomitant]
     Active Substance: RABEPRAZOLE
  9. GOSERELIN ACETATE [Concomitant]
     Active Substance: GOSERELIN ACETATE
  10. APIXABAN [Concomitant]
     Active Substance: APIXABAN
  11. MAGNESIUM [Concomitant]
     Active Substance: MAGNESIUM
  12. HYDROMORPHONE [Concomitant]
     Active Substance: HYDROMORPHONE

REACTIONS (8)
  - Biliary obstruction [Unknown]
  - Prostate cancer [Not Recovered/Not Resolved]
  - Deep vein thrombosis [Unknown]
  - Intra-abdominal fluid collection [Unknown]
  - Poor venous access [Unknown]
  - Off label use [Unknown]
  - Product dose omission issue [Unknown]
  - Constipation [Unknown]

NARRATIVE: CASE EVENT DATE: 20210706
